FAERS Safety Report 12278052 (Version 1)
Quarter: 2016Q2

REPORT INFORMATION
  Report Type: Spontaneous
  Country: FR (occurrence: FR)
  Receive Date: 20160418
  Receipt Date: 20160418
  Transmission Date: 20160815
  Serious: Yes (Hospitalization, Other)
  Sender: FDA-Public Use
  Company Number: FR-SUN PHARMACEUTICAL INDUSTRIES LTD-2016RR-114968

PATIENT
  Age: 24 Year
  Sex: Female

DRUGS (2)
  1. ZINC SULFATE [Interacting]
     Active Substance: ZINC SULFATE\ZINC SULFATE ANHYDROUS
     Indication: HEPATO-LENTICULAR DEGENERATION
     Dosage: 200 MG, TID
     Route: 048
  2. DICLOFENAC [Suspect]
     Active Substance: DICLOFENAC
     Indication: BACK PAIN
     Dosage: UNK
     Route: 065

REACTIONS (2)
  - Drug interaction [Recovered/Resolved]
  - Gastric ulcer perforation [Recovered/Resolved]
